FAERS Safety Report 9525683 (Version 1)
Quarter: 2013Q3

REPORT INFORMATION
  Report Type: Spontaneous
  Country: US (occurrence: US)
  Receive Date: 20130916
  Receipt Date: 20130916
  Transmission Date: 20140515
  Serious: Yes (Hospitalization)
  Sender: FDA-Public Use
  Company Number: US-MYLANLABS-2013S1020100

PATIENT
  Age: 50 Year
  Sex: Female
  Weight: 103 kg

DRUGS (21)
  1. METHYLTHIONINIUM CHLORIDE [Suspect]
     Dosage: 7.5 MG/KG (750MG) OVER A 30-MINUTE PERIOD
     Route: 050
  2. LITHIUM [Suspect]
     Route: 065
  3. INSULIN [Concomitant]
     Route: 065
  4. ATENOLOL [Concomitant]
     Route: 065
  5. VERAPAMIL [Concomitant]
     Route: 065
  6. SYNTHROID [Concomitant]
     Route: 065
  7. GABAPENTIN [Concomitant]
     Route: 065
  8. OXYBUTYNIN [Concomitant]
     Route: 065
  9. LORAZEPAM [Concomitant]
     Route: 048
  10. SIMVASTATIN [Concomitant]
     Route: 065
  11. CARBAMAZEPINE [Concomitant]
     Route: 065
  12. LAMOTRIGINE [Concomitant]
     Route: 065
  13. MIDAZOLAM [Concomitant]
     Indication: SEDATION
     Dosage: 2MG
     Route: 065
  14. FENTANYL [Concomitant]
     Indication: SEDATION
     Dosage: 50MICROG
     Route: 065
  15. FENTANYL [Concomitant]
     Indication: INDUCTION OF ANAESTHESIA
     Dosage: 100MICROG
     Route: 065
  16. LIDOCAINE [Concomitant]
     Route: 065
  17. PROPOFOL [Concomitant]
     Route: 065
  18. SUXAMETHONIUM CHLORIDE [Concomitant]
     Route: 065
  19. SEVOFLURANE [Concomitant]
     Indication: MAINTENANCE OF ANAESTHESIA
     Route: 065
  20. FENTANYL [Concomitant]
     Indication: MAINTENANCE OF ANAESTHESIA
     Dosage: 250MICROG
     Route: 065
  21. MORPHINE [Concomitant]
     Indication: MAINTENANCE OF ANAESTHESIA
     Dosage: 10MG
     Route: 065

REACTIONS (3)
  - Encephalopathy [Recovering/Resolving]
  - Diabetes insipidus [Unknown]
  - Hypernatraemia [Unknown]
